FAERS Safety Report 8605376 (Version 5)
Quarter: 2013Q3

REPORT INFORMATION
  Report Type: Report from Study
  Country: FR (occurrence: FR)
  Receive Date: 20120608
  Receipt Date: 20130909
  Transmission Date: 20140515
  Serious: Yes (Death, Hospitalization, Disabling)
  Sender: FDA-Public Use
  Company Number: FR-009507513-1206FRA00019

PATIENT
  Sex: Female
  Weight: 83 kg

DRUGS (8)
  1. SITAGLIPTIN PHOSPHATE [Suspect]
     Indication: TYPE 2 DIABETES MELLITUS
     Dosage: 100 MG, QD
     Route: 048
     Dates: start: 20091214, end: 20110601
  2. RENITEC [Concomitant]
     Indication: HYPERTENSION
     Dosage: 5 MG, UNKNOWN
     Dates: start: 20111108, end: 20121127
  3. GLUCOPHAGE [Concomitant]
     Indication: TYPE 2 DIABETES MELLITUS
     Dosage: 3 DF, TID
     Route: 048
     Dates: start: 20091214, end: 20121127
  4. GLUCOR [Concomitant]
     Indication: TYPE 2 DIABETES MELLITUS
     Dosage: 3 DF, QD
     Route: 048
     Dates: start: 20091214, end: 20121127
  5. DIAMICRON [Concomitant]
     Indication: TYPE 2 DIABETES MELLITUS
     Dosage: 60 MG, QD
     Route: 048
     Dates: start: 20110601, end: 20121127
  6. LASILIX [Concomitant]
     Indication: HYPERTENSION
     Dosage: UNK
     Dates: start: 20111108, end: 20121127
  7. SEROPLEX [Concomitant]
     Indication: DEPRESSION
     Dosage: UNK
     Dates: start: 20111108, end: 20121127
  8. LYSANXIA [Concomitant]
     Indication: ANXIETY
     Dosage: UNK
     Dates: start: 20111108, end: 20121127

REACTIONS (2)
  - Respiratory distress [Fatal]
  - Superinfection [Fatal]
